FAERS Safety Report 7118534-8 (Version None)
Quarter: 2010Q4

REPORT INFORMATION
  Report Type: 
  Country: None (occurrence: None)
  Receive Date: 20101123
  Receipt Date: 20101122
  Transmission Date: 20110411
  Serious: Yes (Hospitalization)
  Sender: FDA-Public Use
  Company Number: US-CEPHALON-2010005799

PATIENT
  Sex: Female
  Weight: 64 kg

DRUGS (3)
  1. NUVIGIL [Suspect]
     Indication: DEPRESSION
     Route: 048
     Dates: start: 20101013, end: 20101017
  2. PROZAC [Concomitant]
     Indication: DEPRESSION
  3. ABILIFY [Concomitant]

REACTIONS (2)
  - INTENTIONAL OVERDOSE [None]
  - SUICIDE ATTEMPT [None]
